FAERS Safety Report 12366142 (Version 2)
Quarter: 2016Q2

REPORT INFORMATION
  Report Type: Spontaneous
  Country: CN (occurrence: CN)
  Receive Date: 20160513
  Receipt Date: 20160518
  Transmission Date: 20160815
  Serious: Yes (Death, Life-Threatening)
  Sender: FDA-Public Use
  Company Number: CN-ROCHE-1745182

PATIENT
  Age: 30 Year
  Sex: Female
  Weight: 60 kg

DRUGS (6)
  1. HERCEPTIN [Suspect]
     Active Substance: TRASTUZUMAB
     Indication: BREAST CANCER
     Dosage: (CYCLE 7-11)?440MG
     Route: 041
     Dates: start: 20150527, end: 20160113
  2. VINORELBINE [Concomitant]
     Active Substance: VINORELBINE\VINORELBINE TARTRATE
     Indication: BREAST CANCER
     Dosage: (CYCLE 7-11)
     Route: 065
  3. DOCETAXEL. [Concomitant]
     Active Substance: DOCETAXEL
     Indication: BREAST CANCER
     Dosage: (CYCLE 1-6)
     Route: 065
  4. CISPLATIN. [Concomitant]
     Active Substance: CISPLATIN
     Indication: BREAST CANCER
     Dosage: (CYCLE 7-11)
     Route: 065
  5. CAPECITABINE. [Concomitant]
     Active Substance: CAPECITABINE
     Indication: BREAST CANCER
     Dosage: CONTINUOUS FOR 14 DAYS
     Route: 048
     Dates: start: 20150928
  6. DOXORUBICIN [Concomitant]
     Active Substance: DOXORUBICIN
     Indication: BREAST CANCER
     Dosage: (CYCLE 1-6)
     Route: 065

REACTIONS (2)
  - Coma [Unknown]
  - Cardiopulmonary failure [Fatal]

NARRATIVE: CASE EVENT DATE: 20160229
